FAERS Safety Report 12342699 (Version 2)
Quarter: 2016Q2

REPORT INFORMATION
  Report Type: Spontaneous
  Country: FR (occurrence: FR)
  Receive Date: 20160506
  Receipt Date: 20160616
  Transmission Date: 20160815
  Serious: Yes (Life-Threatening, Other)
  Sender: FDA-Public Use
  Company Number: FR-AMGEN-FRASP2016056350

PATIENT
  Age: 56 Year
  Sex: Female

DRUGS (1)
  1. ENBREL [Suspect]
     Active Substance: ETANERCEPT
     Indication: ANKYLOSING SPONDYLITIS
     Dosage: 50 MG, UNK
     Route: 058
     Dates: start: 200706, end: 20151230

REACTIONS (2)
  - Metastases to lymph nodes [Unknown]
  - Tonsil cancer [Unknown]

NARRATIVE: CASE EVENT DATE: 20160129
